FAERS Safety Report 9891124 (Version 1)
Quarter: 2014Q1

REPORT INFORMATION
  Report Type: Spontaneous
  Country: GB (occurrence: GB)
  Receive Date: 20140212
  Receipt Date: 20140212
  Transmission Date: 20141002
  Serious: Yes (Disabling)
  Sender: FDA-Public Use
  Company Number: GB-ELI_LILLY_AND_COMPANY-GB201402001244

PATIENT
  Age: 45 Year
  Sex: Male
  Weight: 82.55 kg

DRUGS (4)
  1. STRATTERA [Suspect]
     Indication: ATTENTION DEFICIT/HYPERACTIVITY DISORDER
     Dosage: 40 MG, QD
     Route: 048
     Dates: start: 20131115
  2. STRATTERA [Suspect]
     Dosage: 60 MG, QD
     Route: 048
     Dates: end: 20140127
  3. RAMIPRIL [Concomitant]
     Indication: HYPERTENSION
     Dosage: UNK
  4. FLUOXETINE [Concomitant]
     Indication: DEPRESSION
     Dosage: UNK

REACTIONS (5)
  - Self-injurious ideation [Unknown]
  - Fear [Unknown]
  - Insomnia [Unknown]
  - Depressed mood [Recovering/Resolving]
  - Sensory disturbance [Unknown]
